FAERS Safety Report 14579429 (Version 6)
Quarter: 2018Q3

REPORT INFORMATION
  Report Type: Report from Study
  Country: US (occurrence: US)
  Receive Date: 20180227
  Receipt Date: 20180924
  Transmission Date: 20181010
  Serious: Yes (Hospitalization)
  Sender: FDA-Public Use
  Company Number: US-ACTELION-A-NJ2017-163990

PATIENT
  Age: 59 Year
  Sex: Female
  Weight: 98.41 kg

DRUGS (17)
  1. REMODULIN [Suspect]
     Active Substance: TREPROSTINIL
     Dosage: 93 NG/KG, PER MIN
     Route: 058
  2. REMODULIN [Suspect]
     Active Substance: TREPROSTINIL
     Dosage: 83 NG/KG, PER MIN
     Route: 058
  3. LETAIRIS [Suspect]
     Active Substance: AMBRISENTAN
     Indication: PRODUCT USED FOR UNKNOWN INDICATION
     Route: 065
  4. REMODULIN [Suspect]
     Active Substance: TREPROSTINIL
     Dosage: 0.032 ML/HR, UNK
     Route: 058
  5. REMODULIN [Suspect]
     Active Substance: TREPROSTINIL
     Dosage: 63 NG/KG, PER MIN
     Route: 058
  6. UPTRAVI [Suspect]
     Active Substance: SELEXIPAG
     Indication: PULMONARY ARTERIAL HYPERTENSION
     Dosage: 800 MCG, BID
     Route: 048
     Dates: start: 20171225
  7. UPTRAVI [Suspect]
     Active Substance: SELEXIPAG
     Dosage: 400 MCG, BID
     Route: 048
  8. UPTRAVI [Suspect]
     Active Substance: SELEXIPAG
     Dosage: 1200 MCG, BID
     Route: 048
  9. UPTRAVI [Suspect]
     Active Substance: SELEXIPAG
     Dosage: 1400 MCG, BID
     Route: 048
  10. OPSUMIT [Suspect]
     Active Substance: MACITENTAN
     Indication: PULMONARY ARTERIAL HYPERTENSION
     Dosage: 10 MG, QD
     Route: 048
     Dates: start: 20171109
  11. ADEMPAS [Concomitant]
     Active Substance: RIOCIGUAT
     Dosage: UNK
     Dates: start: 20180824
  12. UPTRAVI [Suspect]
     Active Substance: SELEXIPAG
     Dosage: UNK
     Route: 048
     Dates: start: 20171204
  13. REMODULIN [Suspect]
     Active Substance: TREPROSTINIL
     Indication: PULMONARY ARTERIAL HYPERTENSION
     Dosage: 96 NG/KG, PER MIN
     Route: 058
     Dates: start: 20110815
  14. REMODULIN [Suspect]
     Active Substance: TREPROSTINIL
     Dosage: 53 NG/KG, PER MIN
     Route: 058
  15. UPTRAVI [Suspect]
     Active Substance: SELEXIPAG
     Dosage: 200 MCG, BID
     Route: 048
  16. UPTRAVI [Suspect]
     Active Substance: SELEXIPAG
     Dosage: 1600 MCG, BID
     Route: 048
  17. ADCIRCA [Suspect]
     Active Substance: TADALAFIL
     Indication: PRODUCT USED FOR UNKNOWN INDICATION
     Route: 065

REACTIONS (28)
  - Dizziness [Unknown]
  - Panic attack [Unknown]
  - Peripheral coldness [Recovered/Resolved]
  - Diabetes mellitus [Unknown]
  - Feeling abnormal [Unknown]
  - Headache [Unknown]
  - Drug dose omission [Unknown]
  - Weight increased [Unknown]
  - Chest discomfort [Unknown]
  - Feeling cold [Unknown]
  - Peripheral swelling [Unknown]
  - Drug ineffective [Unknown]
  - Nasal congestion [Unknown]
  - Thalassaemia [Unknown]
  - Nasopharyngitis [Unknown]
  - Pain [Unknown]
  - Device dislocation [Unknown]
  - Dyspnoea exertional [Unknown]
  - Impaired gastric emptying [Unknown]
  - Migraine [Unknown]
  - Infusion site scar [Unknown]
  - Malabsorption from administration site [Unknown]
  - Dyspnoea [Unknown]
  - Bone pain [Unknown]
  - Swelling [Unknown]
  - Nausea [Unknown]
  - Skin discolouration [Unknown]
  - Incorrect dose administered [Recovered/Resolved]

NARRATIVE: CASE EVENT DATE: 20171204
